FAERS Safety Report 22249745 (Version 9)
Quarter: 2025Q3

REPORT INFORMATION
  Report Type: Report from Study
  Country: KR (occurrence: KR)
  Receive Date: 20230425
  Receipt Date: 20250929
  Transmission Date: 20251021
  Serious: Yes (Hospitalization, Other)
  Sender: MYLAN
  Company Number: KR-MYLANLABS-2023M1042609

PATIENT
  Age: 74 Year
  Sex: Male
  Weight: 46.1 kg

DRUGS (9)
  1. LYRICA [Suspect]
     Active Substance: PREGABALIN
     Indication: Paraesthesia
     Dosage: 225 MILLIGRAM, BID
  2. LYRICA [Suspect]
     Active Substance: PREGABALIN
     Dosage: 450 MILLIGRAM, QD
  3. NESINA [Concomitant]
     Active Substance: ALOGLIPTIN BENZOATE
     Dosage: 25 MILLIGRAM, QD
  4. Dexid [Concomitant]
     Dosage: 480 MILLIGRAM, QD
  5. NEBIVOLOL [Concomitant]
     Active Substance: NEBIVOLOL
     Dosage: 100 MILLIGRAM, QD
  6. NEBIVOLOL [Concomitant]
     Active Substance: NEBIVOLOL
     Dosage: 1.25 MILLIGRAM, QD
  7. NEBIVOLOL [Concomitant]
     Active Substance: NEBIVOLOL
     Dosage: 1 MILLIGRAM, QD
  8. Antipla [Concomitant]
     Dosage: 100 MILLIGRAM, QD
  9. Retium [Concomitant]

REACTIONS (28)
  - COVID-19 pneumonia [Recovered/Resolved with Sequelae]
  - Pneumonia [Recovering/Resolving]
  - Cardiac amyloidosis [Unknown]
  - Condition aggravated [Recovering/Resolving]
  - Respiratory muscle weakness [Unknown]
  - Dyschezia [Unknown]
  - Enuresis [Unknown]
  - Pain in extremity [Recovered/Resolved]
  - Nocturia [Unknown]
  - Muscle disorder [Unknown]
  - Feeling cold [Unknown]
  - Musculoskeletal stiffness [Recovered/Resolved]
  - Blood glucose increased [Unknown]
  - Hypoglycaemia [Recovered/Resolved]
  - Dyspnoea [Not Recovered/Not Resolved]
  - Heart rate increased [Unknown]
  - Insomnia [Unknown]
  - Weight decreased [Unknown]
  - Asthenia [Unknown]
  - Fatigue [Unknown]
  - Diarrhoea [Unknown]
  - Musculoskeletal chest pain [Unknown]
  - Chest pain [Unknown]
  - Cardiomegaly [Unknown]
  - Chills [Recovered/Resolved]
  - Pyrexia [Recovered/Resolved]
  - Speech disorder [Unknown]
  - Off label use [Unknown]

NARRATIVE: CASE EVENT DATE: 20220818
